FAERS Safety Report 7205910-8 (Version None)
Quarter: 2011Q1

REPORT INFORMATION
  Report Type: 
  Country: None (occurrence: None)
  Receive Date: 20110102
  Receipt Date: 20101229
  Transmission Date: 20110831
  Serious: Yes (Hospitalization)
  Sender: FDA-Public Use
  Company Number: US-ALLERGAN-1016213US

PATIENT
  Age: 88 Year
  Sex: Male
  Weight: 82.086 kg

DRUGS (9)
  1. VYTORIN [Concomitant]
     Indication: HYPERLIPIDAEMIA
     Dosage: 20 MG, UNK
     Route: 048
     Dates: start: 20070513
  2. AVODART [Concomitant]
     Indication: BENIGN PROSTATIC HYPERPLASIA
     Dosage: .5 MG, UNK
     Route: 048
     Dates: start: 20040805
  3. HYDROCHLOROTHIAZIDE [Concomitant]
     Indication: HYPERTENSION
     Dosage: 25 MG, QD
     Route: 048
     Dates: start: 20100406
  4. LAMICTAL [Concomitant]
     Indication: CONVULSION
     Dosage: 150 MG, BID
     Route: 048
     Dates: start: 20100922
  5. BOTULINUM TOXIN TYPE A [Suspect]
     Indication: HYPERTONIC BLADDER
     Dosage: 150 UNITS, SINGLE
     Dates: start: 20101115, end: 20101115
  6. AVANDIA [Concomitant]
     Indication: DIABETES MELLITUS
     Dosage: 8 MG, UNK
     Route: 048
     Dates: start: 20041208
  7. NEXIUM [Concomitant]
     Indication: GASTRIC ULCER
     Dosage: 40 MG, BID
     Route: 048
     Dates: start: 20060725
  8. DIOVAN [Concomitant]
     Indication: HYPERTENSION
     Dosage: 80 MG, QD
     Route: 048
     Dates: start: 20061222, end: 20100623
  9. LEVOXYL [Concomitant]
     Indication: HYPOTHYROIDISM
     Dosage: 100 A?G, QD
     Route: 048
     Dates: start: 20070622

REACTIONS (2)
  - UROSEPSIS [None]
  - PYREXIA [None]
